FAERS Safety Report 26009697 (Version 3)
Quarter: 2025Q4

REPORT INFORMATION
  Report Type: Report from Study
  Country: EU (occurrence: EU)
  Receive Date: 20251107
  Receipt Date: 20251217
  Transmission Date: 20260117
  Serious: Yes (Death, Hospitalization, Other)
  Sender: ABBVIE
  Company Number: EU-ABBVIE-5997205

PATIENT
  Age: 74 Year
  Sex: Male

DRUGS (5)
  1. FOSCARBIDOPA\FOSLEVODOPA [Suspect]
     Active Substance: FOSCARBIDOPA\FOSLEVODOPA
     Indication: Parkinson^s disease
     Dosage: SD: 0.6 ML, CRN: 0.15 ML/H, CR: 0.29 ML/H, CRH: 0.3 ML/H, ED: 0.15 ML
     Route: 058
     Dates: start: 2025
  2. FOSCARBIDOPA\FOSLEVODOPA [Suspect]
     Active Substance: FOSCARBIDOPA\FOSLEVODOPA
     Dosage: SD: 0.60 ML, CRN: 0.15 ML/H, CR: 0.25 ML/H, CRH: 0.27 ML/H, ED: 0.15 ML
     Route: 058
     Dates: start: 20241105
  3. FOSCARBIDOPA\FOSLEVODOPA [Suspect]
     Active Substance: FOSCARBIDOPA\FOSLEVODOPA
     Dosage: SD: 0.6 ML, CRN: 0.16 ML/H, CR: 0.29 ML/H, CRH: 0.30 ML/H, ED: 0.15 ML
     Route: 058
  4. CLOZAPINE [Concomitant]
     Active Substance: CLOZAPINE
     Indication: Product used for unknown indication
  5. MARCUMAR [Concomitant]
     Active Substance: PHENPROCOUMON
     Indication: Product used for unknown indication
     Dosage: 1 TABLET, LT

REACTIONS (11)
  - Death [Fatal]
  - Hypokinesia [Not Recovered/Not Resolved]
  - Hallucination [Recovering/Resolving]
  - Dizziness [Not Recovered/Not Resolved]
  - Immobile [Unknown]
  - Gait disturbance [Not Recovered/Not Resolved]
  - On and off phenomenon [Not Recovered/Not Resolved]
  - Movement disorder [Unknown]
  - Coronavirus infection [Unknown]
  - General physical health deterioration [Not Recovered/Not Resolved]
  - Epilepsy [Not Recovered/Not Resolved]

NARRATIVE: CASE EVENT DATE: 20241101
